FAERS Safety Report 25790766 (Version 1)
Quarter: 2025Q3

REPORT INFORMATION
  Report Type: Spontaneous
  Country: US (occurrence: US)
  Receive Date: 20250911
  Receipt Date: 20250911
  Transmission Date: 20251021
  Serious: No
  Sender: PFIZER
  Company Number: US-PFIZER INC-202500179363

PATIENT
  Age: 71 Year
  Sex: Female

DRUGS (3)
  1. PAXLOVID [Suspect]
     Active Substance: NIRMATRELVIR\RITONAVIR
     Indication: COVID-19 treatment
     Dates: start: 20250901, end: 20250905
  2. ASPIRIN [Concomitant]
     Active Substance: ASPIRIN
     Dosage: LOW DOSE ASPIRIN ONE DAILY
  3. METOPROLOL [Concomitant]
     Active Substance: METOPROLOL
     Dates: start: 202305, end: 20250901

REACTIONS (2)
  - COVID-19 [Not Recovered/Not Resolved]
  - Disease recurrence [Not Recovered/Not Resolved]

NARRATIVE: CASE EVENT DATE: 20250909
